FAERS Safety Report 19593213 (Version 1)
Quarter: 2021Q3

REPORT INFORMATION
  Report Type: Spontaneous
  Country: US (occurrence: US)
  Receive Date: 20210721
  Receipt Date: 20210721
  Transmission Date: 20211014
  Serious: Yes (Hospitalization)
  Sender: FDA-Public Use
  Company Number: None

PATIENT
  Age: 85 Year
  Sex: Female

DRUGS (9)
  1. VALACYCLOVIR [Concomitant]
     Active Substance: VALACYCLOVIR HYDROCHLORIDE
  2. ATORVASTATIN [Concomitant]
     Active Substance: ATORVASTATIN
  3. BRIMONIDINE OPHTH SOLUTION 0.2% [Concomitant]
     Active Substance: BRIMONIDINE TARTRATE
  4. FEROSUL [Concomitant]
     Active Substance: FERROUS SULFATE
  5. REVATIO [Suspect]
     Active Substance: SILDENAFIL CITRATE
     Indication: PULMONARY ARTERIAL HYPERTENSION
  6. FLUOCINONIDE. [Concomitant]
     Active Substance: FLUOCINONIDE
  7. LISINOPRIL. [Concomitant]
     Active Substance: LISINOPRIL
  8. CLONIDINE. [Concomitant]
     Active Substance: CLONIDINE
  9. ENBREL [Suspect]
     Active Substance: ETANERCEPT
     Indication: PULMONARY ARTERIAL HYPERTENSION
     Route: 058

REACTIONS (1)
  - Hypertension [None]

NARRATIVE: CASE EVENT DATE: 20210720
